FAERS Safety Report 10560320 (Version 1)
Quarter: 2014Q4

REPORT INFORMATION
  Report Type: Spontaneous
  Country: US (occurrence: US)
  Receive Date: 20141103
  Receipt Date: 20141103
  Transmission Date: 20150529
  Serious: No
  Sender: FDA-Public Use
  Company Number: US-BAUSCH-BL-2014-001940

PATIENT
  Sex: Male

DRUGS (3)
  1. PATADAY [Suspect]
     Active Substance: OLOPATADINE HYDROCHLORIDE
     Indication: EYE ALLERGY
     Route: 047
     Dates: start: 2014
  2. BEPREVE (BEPOTASTINE BESILATE OPHTHALMIC SOLUTION 1.5%) [Suspect]
     Active Substance: BEPOTASTINE\BEPOTASTINE BESILATE
     Indication: EYE ALLERGY
     Route: 047
     Dates: start: 201404, end: 201404
  3. ALAWAY [Concomitant]
     Active Substance: KETOTIFEN FUMARATE
     Indication: PRODUCT USED FOR UNKNOWN INDICATION

REACTIONS (4)
  - Headache [Recovered/Resolved]
  - Fatigue [Recovered/Resolved]
  - Abdominal discomfort [Recovered/Resolved]
  - Mood altered [Recovered/Resolved]

NARRATIVE: CASE EVENT DATE: 2014
